FAERS Safety Report 6743453-6 (Version None)
Quarter: 2010Q2

REPORT INFORMATION
  Report Type: 
  Country: None (occurrence: None)
  Receive Date: 20100527
  Receipt Date: 20100521
  Transmission Date: 20101027
  Serious: Yes (Hospitalization)
  Sender: FDA-Public Use
  Company Number: AU-MYLANLABS-2010S1008554

PATIENT
  Age: 89 Year
  Sex: Female

DRUGS (5)
  1. RIXADONE [Suspect]
     Indication: DEMENTIA
     Route: 048
     Dates: start: 20100101, end: 20100101
  2. ATENOLOL [Concomitant]
     Indication: HYPERTENSION
  3. NITRO-DUR [Concomitant]
     Indication: ANGINA PECTORIS
     Route: 062
  4. PLAVIX [Concomitant]
  5. PERIVASC [Concomitant]
     Indication: HYPERTENSION

REACTIONS (6)
  - ASTHENIA [None]
  - BLOOD PRESSURE DECREASED [None]
  - FLAT AFFECT [None]
  - SALIVARY HYPERSECRETION [None]
  - SOMNOLENCE [None]
  - TRANSIENT ISCHAEMIC ATTACK [None]
